FAERS Safety Report 5320670-3 (Version None)
Quarter: 2007Q1

REPORT INFORMATION
  Report Type: 
  Country: None (occurrence: None)
  Receive Date: 20070220
  Receipt Date: 20061212
  Transmission Date: 20070707
  Serious: No
  Sender: FDA-Public Use
  Company Number: WAES 0612USA02401

PATIENT
  Sex: Male

DRUGS (8)
  1. JANUVIA [Suspect]
     Indication: BLOOD GLUCOSE INCREASED
     Dosage: 100 MG DAILY PO
     Route: 048
     Dates: start: 20061109, end: 20061101
  2. ACTOS [Concomitant]
  3. AMARYL [Concomitant]
  4. DAYPRO [Concomitant]
  5. DILANTIN [Concomitant]
  6. GLUCOPHAGE [Concomitant]
  7. NIPRIDE [Concomitant]
  8. PRAVACHOL [Concomitant]

REACTIONS (1)
  - SINUSITIS [None]
